FAERS Safety Report 20429781 (Version 1)
Quarter: 2022Q1

REPORT INFORMATION
  Report Type: Spontaneous
  Country: US (occurrence: US)
  Receive Date: 20220204
  Receipt Date: 20220204
  Transmission Date: 20220423
  Serious: Yes (Death, Other)
  Sender: FDA-Public Use
  Company Number: US-BAYER-2022A015223

PATIENT
  Age: 74 Year
  Sex: Female

DRUGS (1)
  1. ADEMPAS [Suspect]
     Active Substance: RIOCIGUAT
     Indication: Pulmonary hypertension
     Dosage: UNK

REACTIONS (4)
  - Death [Fatal]
  - Gastric haemorrhage [None]
  - Blood disorder [None]
  - Platelet count decreased [None]

NARRATIVE: CASE EVENT DATE: 20211221
